FAERS Safety Report 23743383 (Version 1)
Quarter: 2024Q2

REPORT INFORMATION
  Report Type: Spontaneous
  Country: US (occurrence: None)
  Receive Date: 20240413
  Receipt Date: 20240413
  Transmission Date: 20240716
  Serious: Yes (Life-Threatening, Hospitalization)
  Sender: FDA-Public Use
  Company Number: None

PATIENT
  Age: 65 Year
  Sex: Male
  Weight: 94.3 kg

DRUGS (7)
  1. CARVYKTI [Suspect]
     Active Substance: CILTACABTAGENE AUTOLEUCEL
     Indication: Plasma cell myeloma
     Dosage: 1 DF DOSAGE FORM ONCE INTRAVENUS BOLUS?
     Route: 040
     Dates: start: 20231109, end: 20231109
  2. ACYCLOVIR [Concomitant]
     Active Substance: ACYCLOVIR
     Dates: start: 20231104
  3. URSODIOL [Concomitant]
     Active Substance: URSODIOL
  4. LEVAQUIN [Concomitant]
     Active Substance: LEVOFLOXACIN
     Dates: start: 20231104
  5. FLUCONAZOLE [Concomitant]
     Active Substance: FLUCONAZOLE
     Dates: start: 20231104
  6. AMLODIPINE [Concomitant]
     Active Substance: AMLODIPINE BESYLATE
  7. METOPROLOL [Concomitant]
     Active Substance: METOPROLOL

REACTIONS (5)
  - Lymphocyte adoptive therapy [None]
  - Cytokine release syndrome [None]
  - Aphasia [None]
  - Enterocolitis [None]
  - Septic shock [None]

NARRATIVE: CASE EVENT DATE: 20231111
